FAERS Safety Report 25172536 (Version 2)
Quarter: 2025Q3

REPORT INFORMATION
  Report Type: Spontaneous
  Country: US (occurrence: US)
  Receive Date: 20250408
  Receipt Date: 20250703
  Transmission Date: 20251020
  Serious: Yes (Other)
  Sender: Steriscience PTE
  Company Number: US-STERISCIENCE B.V.-2025-ST-000649

PATIENT
  Age: 28 Year
  Sex: Female

DRUGS (4)
  1. METOPROLOL [Suspect]
     Active Substance: METOPROLOL
     Indication: Atrial fibrillation
     Route: 065
  2. METOPROLOL [Suspect]
     Active Substance: METOPROLOL
     Indication: Atrial flutter
  3. DIGOXIN [Suspect]
     Active Substance: DIGOXIN
     Indication: Atrial fibrillation
     Route: 065
  4. DIGOXIN [Suspect]
     Active Substance: DIGOXIN
     Indication: Atrial flutter

REACTIONS (3)
  - Premature delivery [Unknown]
  - Drug ineffective for unapproved indication [Unknown]
  - Maternal exposure during pregnancy [Unknown]
